FAERS Safety Report 8276218-7 (Version None)
Quarter: 2012Q2

REPORT INFORMATION
  Report Type: 
  Country: None (occurrence: None)
  Receive Date: 20120409
  Receipt Date: 20120403
  Transmission Date: 20120825
  Serious: Yes (Hospitalization, Other)
  Sender: FDA-Public Use
  Company Number: 2010SP026331

PATIENT
  Age: 31 Year
  Sex: Female
  Weight: 82.5547 kg

DRUGS (3)
  1. NUVARING [Suspect]
     Indication: CONTRACEPTION
     Dates: start: 20070531, end: 20080901
  2. SEROQUEL [Suspect]
     Indication: ANXIETY
     Dates: start: 20080101, end: 20080101
  3. SEROQUEL [Suspect]
     Indication: DEPRESSION
     Dates: start: 20080101, end: 20080101

REACTIONS (14)
  - PULMONARY EMBOLISM [None]
  - LIGAMENT SPRAIN [None]
  - WEIGHT INCREASED [None]
  - INFARCTION [None]
  - AFFECTIVE DISORDER [None]
  - SINUS TACHYCARDIA [None]
  - EMBOLISM VENOUS [None]
  - GASTROOESOPHAGEAL REFLUX DISEASE [None]
  - HYDRONEPHROSIS [None]
  - CALCULUS URINARY [None]
  - HERPES VIRUS INFECTION [None]
  - DEEP VEIN THROMBOSIS [None]
  - MAJOR DEPRESSION [None]
  - URINARY TRACT INFECTION [None]
